FAERS Safety Report 10589776 (Version 1)
Quarter: 2014Q4

REPORT INFORMATION
  Report Type: Spontaneous
  Country: BR (occurrence: BR)
  Receive Date: 20141118
  Receipt Date: 20141118
  Transmission Date: 20150529
  Serious: Yes (Other)
  Sender: FDA-Public Use
  Company Number: BR-JNJFOC-20141106534

PATIENT
  Sex: Male
  Weight: 82 kg

DRUGS (4)
  1. MAREVAN [Concomitant]
     Active Substance: WARFARIN SODIUM
     Indication: AORTIC VALVE DISEASE
     Route: 065
  2. CRESTOR [Concomitant]
     Active Substance: ROSUVASTATIN CALCIUM
     Indication: BLOOD CHOLESTEROL
     Route: 065
  3. REMICADE [Suspect]
     Active Substance: INFLIXIMAB
     Indication: ANKYLOSING SPONDYLITIS
     Route: 042
     Dates: start: 201402
  4. ATENOLOL. [Concomitant]
     Active Substance: ATENOLOL
     Indication: AORTIC VALVE DISEASE
     Route: 065

REACTIONS (1)
  - Cataract [Recovered/Resolved]

NARRATIVE: CASE EVENT DATE: 2014
